FAERS Safety Report 9650435 (Version 1)
Quarter: 2013Q4

REPORT INFORMATION
  Report Type: Spontaneous
  Country: US (occurrence: US)
  Receive Date: 20131028
  Receipt Date: 20131028
  Transmission Date: 20140711
  Serious: No
  Sender: FDA-Public Use
  Company Number: US-009507513-1310USA004438

PATIENT
  Age: 64 Year
  Sex: Female

DRUGS (1)
  1. COSOPT PF [Suspect]
     Indication: GLAUCOMA
     Dosage: 2 DROPS TWICE DAILY IN EACH EYE
     Route: 047
     Dates: start: 20131004

REACTIONS (3)
  - Eye burns [Not Recovered/Not Resolved]
  - Discomfort [Not Recovered/Not Resolved]
  - Lacrimation increased [Not Recovered/Not Resolved]
